FAERS Safety Report 7183844-5 (Version None)
Quarter: 2010Q4

REPORT INFORMATION
  Report Type: 
  Country: None (occurrence: None)
  Receive Date: 20101222
  Receipt Date: 20101214
  Transmission Date: 20110411
  Serious: Yes (Hospitalization, Disabling)
  Sender: FDA-Public Use
  Company Number: US-SANOFI-AVENTIS-2010SA076255

PATIENT
  Age: 69 Year
  Sex: Female
  Weight: 55 kg

DRUGS (10)
  1. PLAVIX [Suspect]
     Route: 048
     Dates: start: 20020101
  2. ASPIRIN [Suspect]
     Route: 065
  3. NORVASC [Concomitant]
     Indication: BLOOD PRESSURE
  4. COUMADIN [Concomitant]
  5. PROTON PUMP INHIBITORS [Concomitant]
  6. POTASSIUM [Concomitant]
  7. CHOLESTEROL- AND TRIGLYCERIDE REDUCERS [Concomitant]
  8. XANAX [Concomitant]
  9. FOSAMAX [Concomitant]
  10. VITAMIN D [Concomitant]
     Indication: OSTEOPOROSIS

REACTIONS (6)
  - ABASIA [None]
  - APHONIA [None]
  - CEREBROVASCULAR ACCIDENT [None]
  - CONVULSION [None]
  - FATIGUE [None]
  - HEMIPLEGIA [None]
